FAERS Safety Report 17483717 (Version 1)
Quarter: 2020Q1

REPORT INFORMATION
  Report Type: Spontaneous
  Country: US (occurrence: US)
  Receive Date: 20200301
  Receipt Date: 20200301
  Transmission Date: 20200409
  Serious: Yes (Life-Threatening, Hospitalization)
  Sender: FDA-Public Use
  Company Number: None

PATIENT
  Age: 26 Year
  Sex: Male
  Weight: 67.5 kg

DRUGS (1)
  1. QBREXZA [Suspect]
     Active Substance: GLYCOPYRRONIUM TOSYLATE
     Indication: PRURITUS GENITAL
     Dosage: ?          QUANTITY:1 1;?
     Route: 061
     Dates: start: 20191123, end: 20191123

REACTIONS (6)
  - Feeding disorder [None]
  - Delirium [None]
  - Urinary retention [None]
  - Mydriasis [None]
  - Dry mouth [None]
  - Dysphagia [None]

NARRATIVE: CASE EVENT DATE: 20191123
